FAERS Safety Report 18679553 (Version 2)
Quarter: 2021Q1

REPORT INFORMATION
  Report Type: Spontaneous
  Country: CA (occurrence: CA)
  Receive Date: 20201230
  Receipt Date: 20210127
  Transmission Date: 20210419
  Serious: Yes (Hospitalization)
  Sender: FDA-Public Use
  Company Number: CA-AKCEA THERAPEUTICS-2020IS001657

PATIENT
  Age: 59 Year
  Sex: Female
  Weight: 35.86 kg

DRUGS (9)
  1. CLARITIN [Concomitant]
     Active Substance: LORATADINE
     Route: 048
  2. VAGISIL /00104701/ [Concomitant]
     Route: 061
  3. VITAMIN A /00056001/ [Suspect]
     Active Substance: RETINOL
  4. TEGSEDI [Suspect]
     Active Substance: INOTERSEN SODIUM
     Indication: HEREDITARY NEUROPATHIC AMYLOIDOSIS
     Route: 058
     Dates: start: 20200421
  5. ISSD (INTEGRATED SYRINGE SAFETY DEVICE) [Suspect]
     Active Substance: DEVICE
  6. VITAMIN C [Concomitant]
     Active Substance: ASCORBIC ACID
     Route: 048
  7. MIDODRINE [Concomitant]
     Active Substance: MIDODRINE
     Route: 048
     Dates: start: 2020
  8. VITAMIN D /00318501/ [Concomitant]
     Active Substance: CHOLECALCIFEROL
     Route: 048
  9. VENIXXA [Concomitant]

REACTIONS (10)
  - Cardiac pacemaker insertion [Unknown]
  - Balance disorder [Unknown]
  - Dry skin [Unknown]
  - Abdominal discomfort [Unknown]
  - Hereditary neuropathic amyloidosis [Unknown]
  - Walking disability [Unknown]
  - Hypoaesthesia [Unknown]
  - Computerised tomogram kidney abnormal [Unknown]
  - Dizziness [Recovered/Resolved]
  - Diarrhoea [Not Recovered/Not Resolved]

NARRATIVE: CASE EVENT DATE: 20201216
